FAERS Safety Report 6236478-0 (Version None)
Quarter: 2009Q2

REPORT INFORMATION
  Report Type: 
  Country: None (occurrence: None)
  Receive Date: 20090619
  Receipt Date: 20090610
  Transmission Date: 20091009
  Serious: Yes (Other)
  Sender: FDA-Public Use
  Company Number: GB-PFIZER INC-2009217916

PATIENT
  Age: 14 Year

DRUGS (1)
  1. CABERGOLINE [Suspect]
     Indication: PROLACTINOMA

REACTIONS (2)
  - BLOOD PROLACTIN INCREASED [None]
  - DRUG RESISTANCE [None]
